FAERS Safety Report 9584506 (Version 1)
Quarter: 2013Q4

REPORT INFORMATION
  Report Type: Spontaneous
  Country: US (occurrence: US)
  Receive Date: 20131002
  Receipt Date: 20131002
  Transmission Date: 20140711
  Serious: No
  Sender: FDA-Public Use
  Company Number: US-AMGEN-USASP2013053570

PATIENT
  Age: 55 Year
  Sex: Female
  Weight: 65.31 kg

DRUGS (4)
  1. ENBREL [Suspect]
     Indication: PRODUCT USED FOR UNKNOWN INDICATION
     Dosage: 50 MG, TWICE WEEKLY
     Route: 058
  2. ALBUTEROL                          /00139501/ [Concomitant]
     Dosage: 90 MUG, UNK
  3. ADVAIR [Concomitant]
     Dosage: 250/50, UNK, UNK
  4. EPIPEN [Concomitant]
     Dosage: 0.3 MG, UNK

REACTIONS (1)
  - Injection site pain [Unknown]
